FAERS Safety Report 12202241 (Version 2)
Quarter: 2016Q2

REPORT INFORMATION
  Report Type: Spontaneous
  Country: IT (occurrence: IT)
  Receive Date: 20160322
  Receipt Date: 20160406
  Transmission Date: 20160815
  Serious: Yes (Hospitalization)
  Sender: FDA-Public Use
  Company Number: IT-SA-2016SA053657

PATIENT
  Age: 45 Year
  Sex: Male

DRUGS (6)
  1. PORTOLAC [Concomitant]
     Active Substance: LACTITOL
     Dosage: 200 G POWDER PER ORAL SOLUTION JAR
     Route: 048
  2. LANTUS [Suspect]
     Active Substance: INSULIN GLARGINE
     Route: 058
  3. HUMALOG MIX75/25 [Suspect]
     Active Substance: INSULIN LISPRO
     Route: 058
  4. INDERAL [Concomitant]
     Active Substance: PROPRANOLOL HYDROCHLORIDE
     Dosage: 40 MG TABLETS
     Route: 048
  5. LASIX [Concomitant]
     Active Substance: FUROSEMIDE
     Dosage: 25 MG TABLETS
     Route: 048
  6. LUVION [Concomitant]
     Active Substance: CANRENONE
     Dosage: 100 MG HARD CAPSULES
     Route: 048

REACTIONS (1)
  - Hyperglycaemia [Recovering/Resolving]

NARRATIVE: CASE EVENT DATE: 20160119
